FAERS Safety Report 17985980 (Version 2)
Quarter: 2020Q3

REPORT INFORMATION
  Report Type: Spontaneous
  Country: JP (occurrence: JP)
  Receive Date: 20200707
  Receipt Date: 20200903
  Transmission Date: 20201103
  Serious: Yes (Hospitalization)
  Sender: FDA-Public Use
  Company Number: JP-TAKEDA-2020TJP013364AA

PATIENT
  Age: 63 Year
  Sex: Male

DRUGS (2)
  1. ENTYVIO [Suspect]
     Active Substance: VEDOLIZUMAB
     Indication: COLITIS ULCERATIVE
     Dosage: 300 MILLIGRAM
     Route: 042
     Dates: start: 20190415
  2. MESALAZINE [Concomitant]
     Active Substance: MESALAMINE
     Dosage: UNK
     Route: 065

REACTIONS (1)
  - Surgery [Unknown]

NARRATIVE: CASE EVENT DATE: 202004
